FAERS Safety Report 25079162 (Version 1)
Quarter: 2025Q1

REPORT INFORMATION
  Report Type: Spontaneous
  Country: US (occurrence: None)
  Receive Date: 20250314
  Receipt Date: 20250314
  Transmission Date: 20250408
  Serious: No
  Sender: FDA-CTU
  Company Number: None

PATIENT

DRUGS (1)
  1. SKYRIZI [Suspect]
     Active Substance: RISANKIZUMAB-RZAA

REACTIONS (9)
  - Arthralgia [None]
  - Back pain [None]
  - Fatigue [None]
  - Weight decreased [None]
  - Abdominal distension [None]
  - Faeces soft [None]
  - Nausea [None]
  - Cardiac flutter [None]
  - Hypertension [None]
